FAERS Safety Report 8394019-6 (Version None)
Quarter: 2012Q2

REPORT INFORMATION
  Report Type: 
  Country: None (occurrence: None)
  Receive Date: 20120530
  Receipt Date: 20120516
  Transmission Date: 20120825
  Serious: Yes (Hospitalization)
  Sender: FDA-Public Use
  Company Number: US-JNJFOC-20120209139

PATIENT
  Sex: Female
  Weight: 58.97 kg

DRUGS (11)
  1. MORPHINE [Suspect]
     Indication: PRODUCT USED FOR UNKNOWN INDICATION
     Route: 065
  2. SOLU-MEDROL [Suspect]
     Indication: PREMEDICATION
     Route: 065
  3. BENADRYL [Suspect]
     Indication: PREMEDICATION
     Route: 065
  4. BENADRYL [Suspect]
     Indication: MULTIPLE ALLERGIES
     Route: 048
     Dates: start: 20090710, end: 20120410
  5. REMICADE [Suspect]
     Route: 042
     Dates: start: 20070101
  6. EPIPEN [Suspect]
     Indication: MULTIPLE ALLERGIES
     Route: 030
     Dates: start: 20080324, end: 20120410
  7. CALCIUM WITH VITAMIN D [Concomitant]
     Indication: HYPOCALCAEMIA
     Route: 048
     Dates: start: 20110616, end: 20120410
  8. REMICADE [Suspect]
     Route: 042
     Dates: start: 20090113, end: 20120410
  9. IMURAN [Suspect]
     Indication: RHEUMATOID ARTHRITIS
     Route: 065
     Dates: start: 20110901, end: 20120410
  10. REMICADE [Suspect]
     Indication: JUVENILE ARTHRITIS
     Dosage: ALSO REPORTED AS EVERY 6 WEEKS
     Route: 042
  11. FEXOFENADINE [Suspect]
     Indication: MULTIPLE ALLERGIES
     Route: 048
     Dates: start: 20080324, end: 20120410

REACTIONS (10)
  - JUVENILE ARTHRITIS [None]
  - TENDON DISORDER [None]
  - CHOLELITHIASIS [None]
  - ABNORMAL LOSS OF WEIGHT [None]
  - BODY HEIGHT DECREASED [None]
  - FOOD ALLERGY [None]
  - DRUG INEFFECTIVE [None]
  - MATERNAL EXPOSURE DURING PREGNANCY [None]
  - NEPHROLITHIASIS [None]
  - LIPOMA [None]
